FAERS Safety Report 13535871 (Version 1)
Quarter: 2017Q2

REPORT INFORMATION
  Report Type: Spontaneous
  Country: US (occurrence: US)
  Receive Date: 20170511
  Receipt Date: 20170511
  Transmission Date: 20170830
  Serious: Yes (Hospitalization, Disabling)
  Sender: FDA-Public Use
  Company Number: None

PATIENT
  Age: 37 Year
  Sex: Male
  Weight: 130.5 kg

DRUGS (6)
  1. VIBERZI [Suspect]
     Active Substance: ELUXADOLINE
     Indication: IRRITABLE BOWEL SYNDROME
     Dosage: ?          QUANTITY:1 CAPSULE(S);?
     Route: 048
     Dates: start: 20151222, end: 20170103
  2. LOSARTAN. [Concomitant]
     Active Substance: LOSARTAN
  3. IMITREX [Concomitant]
     Active Substance: SUMATRIPTAN SUCCINATE
  4. SINGULAIR [Concomitant]
     Active Substance: MONTELUKAST SODIUM
  5. BUSPIRONE [Concomitant]
     Active Substance: BUSPIRONE HYDROCHLORIDE
  6. ZOLOFT [Concomitant]
     Active Substance: SERTRALINE HYDROCHLORIDE

REACTIONS (2)
  - Abdominal pain upper [None]
  - Pancreatitis acute [None]

NARRATIVE: CASE EVENT DATE: 20161227
